FAERS Safety Report 8171320-2 (Version None)
Quarter: 2012Q1

REPORT INFORMATION
  Report Type: 
  Country: None (occurrence: None)
  Receive Date: 20120228
  Receipt Date: 20120223
  Transmission Date: 20120608
  Serious: Yes (Disabling)
  Sender: FDA-Public Use
  Company Number: GB-ABBOTT-12P-167-0908287-00

PATIENT
  Age: 75 Year
  Sex: Female
  Weight: 69.8 kg

DRUGS (32)
  1. HYOSCINE BUTYLBROMIDE [Concomitant]
     Dates: start: 20120104, end: 20120118
  2. MOVELAT [Concomitant]
     Indication: PRODUCT USED FOR UNKNOWN INDICATION
     Dates: start: 20111031, end: 20111128
  3. AMLODIPINE [Concomitant]
     Dates: start: 20111207, end: 20120104
  4. ATORVASTATIN [Concomitant]
     Indication: PRODUCT USED FOR UNKNOWN INDICATION
     Dates: start: 20111031, end: 20111128
  5. HYOSCINE BUTYLBROMIDE [Concomitant]
     Indication: PRODUCT USED FOR UNKNOWN INDICATION
     Dates: start: 20111031, end: 20111114
  6. LANSOPRAZOLE [Concomitant]
     Indication: PRODUCT USED FOR UNKNOWN INDICATION
     Dates: start: 20111031, end: 20111128
  7. METFORMIN HCL [Concomitant]
     Dates: start: 20120111, end: 20120208
  8. ACETAMINOPHEN [Concomitant]
     Dates: start: 20120104, end: 20120118
  9. ACETAMINOPHEN [Concomitant]
     Dates: start: 20120201
  10. SPIRONOLACTONE [Concomitant]
     Indication: PRODUCT USED FOR UNKNOWN INDICATION
     Dates: start: 20111130
  11. CLARITHROMYCIN [Suspect]
     Indication: PRODUCT USED FOR UNKNOWN INDICATION
     Dates: start: 20120213
  12. ATORVASTATIN [Concomitant]
     Dates: start: 20111207
  13. BUPRENORPHINE [Concomitant]
     Dates: start: 20111207
  14. MOVELAT [Concomitant]
     Dates: start: 20111207
  15. AMITRIPTYLINE HCL [Concomitant]
     Indication: PRODUCT USED FOR UNKNOWN INDICATION
     Dates: start: 20111031, end: 20111128
  16. HYOSCINE BUTYLBROMIDE [Concomitant]
     Dates: start: 20111207, end: 20111221
  17. ACETAMINOPHEN [Concomitant]
     Indication: PRODUCT USED FOR UNKNOWN INDICATION
     Dates: start: 20111031, end: 20111114
  18. QUININE SULFATE [Concomitant]
     Indication: PRODUCT USED FOR UNKNOWN INDICATION
     Dates: start: 20111031, end: 20111130
  19. FERROUS SULFATE TAB [Concomitant]
     Indication: PRODUCT USED FOR UNKNOWN INDICATION
     Dates: start: 20111031, end: 20111128
  20. METFORMIN HCL [Concomitant]
     Dates: start: 20111207, end: 20120104
  21. GLIMEPIRIDE [Concomitant]
     Indication: PRODUCT USED FOR UNKNOWN INDICATION
     Dates: start: 20111223, end: 20120122
  22. RAMIPRIL [Concomitant]
     Indication: PRODUCT USED FOR UNKNOWN INDICATION
     Dates: start: 20111223
  23. AMLODIPINE [Concomitant]
     Indication: PRODUCT USED FOR UNKNOWN INDICATION
     Dates: start: 20111031, end: 20111128
  24. BUPRENORPHINE [Concomitant]
     Indication: PRODUCT USED FOR UNKNOWN INDICATION
     Dates: start: 20111031, end: 20111128
  25. HYOSCINE BUTYLBROMIDE [Concomitant]
     Dates: start: 20120201
  26. LANSOPRAZOLE [Concomitant]
     Dates: start: 20111207
  27. METFORMIN HCL [Concomitant]
     Indication: PRODUCT USED FOR UNKNOWN INDICATION
     Dates: start: 20111031, end: 20111128
  28. FUROSEMIDE [Concomitant]
     Indication: PRODUCT USED FOR UNKNOWN INDICATION
     Dates: start: 20111130
  29. AMITRIPTYLINE HCL [Concomitant]
     Dates: start: 20111207
  30. FERROUS SULFATE TAB [Concomitant]
     Dates: start: 20111207
  31. ACETAMINOPHEN [Concomitant]
     Dates: start: 20111207, end: 20111221
  32. QUININE SULFATE [Concomitant]
     Dates: start: 20111223

REACTIONS (2)
  - HEADACHE [None]
  - MALAISE [None]
